FAERS Safety Report 7659256-4 (Version None)
Quarter: 2011Q3

REPORT INFORMATION
  Report Type: 
  Country: None (occurrence: None)
  Receive Date: 20110805
  Receipt Date: 20110728
  Transmission Date: 20111222
  Serious: Yes (Life-Threatening, Hospitalization)
  Sender: FDA-Public Use
  Company Number: JP-NOVOPROD-316277

PATIENT

DRUGS (1)
  1. NOVORAPID CHU FLEXPEN [Suspect]
     Indication: OFF LABEL USE
     Dosage: 180 U, SINGLE
     Route: 058
     Dates: start: 20100928, end: 20100928

REACTIONS (11)
  - HEART RATE IRREGULAR [None]
  - PCO2 INCREASED [None]
  - BLOOD GLUCOSE INCREASED [None]
  - SUICIDE ATTEMPT [None]
  - INTENTIONAL OVERDOSE [None]
  - PUPILLARY REFLEX IMPAIRED [None]
  - BLOOD PH DECREASED [None]
  - HYPOGLYCAEMIC ENCEPHALOPATHY [None]
  - PO2 INCREASED [None]
  - APALLIC SYNDROME [None]
  - BODY TEMPERATURE DECREASED [None]
